FAERS Safety Report 5684093-X (Version None)
Quarter: 2008Q1

REPORT INFORMATION
  Report Type: 
  Country: None (occurrence: None)
  Receive Date: 20080328
  Receipt Date: 20070212
  Transmission Date: 20080703
  Serious: Yes (Hospitalization)
  Sender: FDA-Public Use
  Company Number: US-AMGEN-US164258

PATIENT
  Sex: Male
  Weight: 82.2 kg

DRUGS (3)
  1. NEULASTA [Suspect]
     Indication: CHEMOTHERAPY
     Route: 058
     Dates: start: 20060104, end: 20060104
  2. CARBOPLATIN [Concomitant]
     Route: 042
     Dates: start: 20060103, end: 20060103
  3. TAXOL [Concomitant]
     Route: 042
     Dates: start: 20060103, end: 20060103

REACTIONS (1)
  - SPLENIC RUPTURE [None]
